FAERS Safety Report 19017526 (Version 1)
Quarter: 2021Q1

REPORT INFORMATION
  Report Type: Spontaneous
  Country: US (occurrence: US)
  Receive Date: 20210317
  Receipt Date: 20210317
  Transmission Date: 20210420
  Serious: Yes (Other)
  Sender: FDA-Public Use
  Company Number: US-UROGEN PHARMA LTD.-2021-UGN-000010

PATIENT
  Age: 84 Year
  Sex: Female

DRUGS (3)
  1. JELMYTO [Suspect]
     Active Substance: MITOMYCIN
     Indication: TRANSITIONAL CELL CANCER OF THE RENAL PELVIS AND URETER
     Dosage: UNK, QW (INSTILLATION)
     Dates: start: 20210217, end: 20210217
  2. JELMYTO [Suspect]
     Active Substance: MITOMYCIN
     Dosage: UNK (INSTILLATION)
  3. JELMYTO [Suspect]
     Active Substance: MITOMYCIN
     Dosage: UNK, (INSTILLATION)
     Dates: start: 20210303, end: 20210303

REACTIONS (3)
  - Pollakiuria [Not Recovered/Not Resolved]
  - Insomnia [Not Recovered/Not Resolved]
  - Delirium [Not Recovered/Not Resolved]

NARRATIVE: CASE EVENT DATE: 20210303
